FAERS Safety Report 9320935 (Version 1)
Quarter: 2013Q2

REPORT INFORMATION
  Report Type: Report from Study
  Country: PH (occurrence: PH)
  Receive Date: 20130531
  Receipt Date: 20130531
  Transmission Date: 20140414
  Serious: Yes (Other)
  Sender: FDA-Public Use
  Company Number: PHHY2013PH033980

PATIENT
  Age: 48 Year
  Sex: Male

DRUGS (4)
  1. GLIVEC [Suspect]
     Indication: CHRONIC MYELOID LEUKAEMIA
     Dosage: 400 MG, DAILY
     Route: 048
  2. GLIVEC [Suspect]
     Dosage: 800 MG, DAILY
     Route: 048
     Dates: start: 20120328
  3. SODIUM BICARBONATE [Concomitant]
     Dosage: 650 MG, 3 X/DAY
     Route: 048
     Dates: start: 20130328
  4. ALLOPURINOL [Concomitant]
     Dosage: 300 MG, DAILY
     Route: 048
     Dates: start: 20130328

REACTIONS (4)
  - Myelofibrosis [Unknown]
  - Chronic myeloid leukaemia [Unknown]
  - White blood cell count increased [Not Recovered/Not Resolved]
  - No therapeutic response [Not Recovered/Not Resolved]
